FAERS Safety Report 8866105 (Version 2)
Quarter: 2012Q4

REPORT INFORMATION
  Report Type: 
  Country: US (occurrence: US)
  Receive Date: 20121025
  Receipt Date: 20121107
  Transmission Date: 20130627
  Serious: No
  Sender: FDA-Public Use
  Company Number: US-B.I. PHARMACEUTICALS,INC./RIDGEFIELD-2012-BP-25274BP

PATIENT
  Age: 50 None
  Sex: Male
  Weight: 100 kg

DRUGS (7)
  1. COMBIVENT [Suspect]
     Indication: CHRONIC OBSTRUCTIVE PULMONARY DISEASE
     Dosage: 4 puf
     Route: 055
     Dates: start: 201010
  2. ASPIRIN [Concomitant]
     Indication: CHEST PAIN
     Dosage: 81 mg
     Route: 048
     Dates: start: 2006
  3. ABILIFY [Concomitant]
     Indication: BIPOLAR DISORDER
     Dosage: 45 mg
     Route: 048
     Dates: start: 2007
  4. DEPAKOTE ER [Concomitant]
     Indication: BIPOLAR DISORDER
     Dosage: 1000 mg
     Route: 048
     Dates: start: 2007
  5. CLONIDINE [Concomitant]
     Indication: ANXIETY
     Dosage: 1 mg
     Route: 048
     Dates: start: 2009
  6. ZESTRIL [Concomitant]
     Indication: HYPERTENSION
     Dosage: 40 mg
     Route: 048
     Dates: start: 2009
  7. LEXAPRO [Concomitant]
     Indication: DEPRESSION
     Dosage: 20 mg
     Route: 048
     Dates: start: 2007

REACTIONS (8)
  - Joint stiffness [Not Recovered/Not Resolved]
  - Blood pressure increased [Not Recovered/Not Resolved]
  - Joint swelling [Not Recovered/Not Resolved]
  - Gastritis [Not Recovered/Not Resolved]
  - Neck pain [Not Recovered/Not Resolved]
  - Muscle spasms [Not Recovered/Not Resolved]
  - Dyspnoea [Not Recovered/Not Resolved]
  - Product quality issue [Not Recovered/Not Resolved]
